FAERS Safety Report 20180909 (Version 1)
Quarter: 2021Q4

REPORT INFORMATION
  Report Type: Spontaneous
  Country: UA (occurrence: UA)
  Receive Date: 20211214
  Receipt Date: 20211214
  Transmission Date: 20220303
  Serious: Yes (Other)
  Sender: FDA-Public Use
  Company Number: UA-NOVARTISPH-NVSC2021UA282181

PATIENT
  Sex: Male

DRUGS (1)
  1. HYRIMOZ [Suspect]
     Active Substance: ADALIMUMAB-ADAZ
     Indication: Ankylosing spondylitis
     Route: 065

REACTIONS (5)
  - Blood albumin decreased [Unknown]
  - Glomerular filtration rate decreased [Unknown]
  - Blood creatinine increased [Unknown]
  - Blood urea increased [Unknown]
  - Condition aggravated [Unknown]
